FAERS Safety Report 6668462-7 (Version None)
Quarter: 2010Q2

REPORT INFORMATION
  Report Type: 
  Country: None (occurrence: None)
  Receive Date: 20100406
  Receipt Date: 20100326
  Transmission Date: 20101027
  Serious: Yes (Other)
  Sender: FDA-Public Use
  Company Number: PHEH2010US03345

PATIENT
  Sex: Female

DRUGS (5)
  1. VIVELLE-DOT [Suspect]
     Dosage: UNK
     Dates: start: 20090801
  2. ANTIBIOTICS [Concomitant]
  3. DIFLUCAN [Concomitant]
  4. MIRALAX [Concomitant]
  5. HYDROCODONE [Concomitant]

REACTIONS (8)
  - BODY TEMPERATURE DECREASED [None]
  - BOWEL MOVEMENT IRREGULARITY [None]
  - CONFUSIONAL STATE [None]
  - DYSKINESIA [None]
  - FEELING ABNORMAL [None]
  - HAEMORRHAGIC DIATHESIS [None]
  - MYALGIA [None]
  - SURGERY [None]
